FAERS Safety Report 4727414-4 (Version None)
Quarter: 2005Q3

REPORT INFORMATION
  Report Type: 
  Country: None (occurrence: None)
  Receive Date: 20050727
  Receipt Date: 20050727
  Transmission Date: 20060218
  Serious: Yes (Hospitalization)
  Sender: FDA-Public Use
  Company Number: None

PATIENT
  Age: 74 Year
  Sex: Male
  Weight: 92.5338 kg

DRUGS (13)
  1. MIDAZOLOM [Suspect]
     Indication: SEDATION
     Dosage: 2 MG IV
     Route: 042
     Dates: start: 20050330
  2. MEPERIDINE [Suspect]
     Indication: SEDATION
     Dosage: 50 MG IV
     Route: 042
     Dates: start: 20050330
  3. SINGULAIR [Concomitant]
  4. LISINOPRIL [Concomitant]
  5. ATENOLOL [Concomitant]
  6. HYDROCHLOROTHIAZIDE [Concomitant]
  7. FORMOTEROL [Concomitant]
  8. GLIPIZIDE [Concomitant]
  9. TEROZICIN [Concomitant]
  10. OXYBUTRIN [Concomitant]
  11. ALBUTEROL [Concomitant]
  12. ATROVENT [Concomitant]
  13. LASIX [Concomitant]

REACTIONS (6)
  - COLITIS [None]
  - HYPOTENSION [None]
  - HYPOVOLAEMIA [None]
  - LOWER GASTROINTESTINAL HAEMORRHAGE [None]
  - ORTHOSTATIC HYPOTENSION [None]
  - RADIATION INJURY [None]
